FAERS Safety Report 5738708-8 (Version None)
Quarter: 2008Q2

REPORT INFORMATION
  Report Type: 
  Country: None (occurrence: None)
  Receive Date: 20080513
  Receipt Date: 20080513
  Transmission Date: 20081010
  Serious: Yes (Hospitalization)
  Sender: FDA-Public Use
  Company Number: None

PATIENT
  Age: 64 Year
  Sex: Female
  Weight: 63.05 kg

DRUGS (2)
  1. BONIVA [Suspect]
     Indication: OSTEOPOROSIS
     Dosage: 3 MG Q 3 MONTHS IV
     Route: 042
     Dates: start: 20080102
  2. BONIVA [Suspect]
     Indication: OSTEOPOROSIS
     Dosage: 3 MG Q 3 MONTHS IV
     Route: 042
     Dates: start: 20080423

REACTIONS (1)
  - TRANSIENT ISCHAEMIC ATTACK [None]
